FAERS Safety Report 7893640 (Version 6)
Quarter: 2015Q4

REPORT INFORMATION
  Report Type: Spontaneous
  Country: GB (occurrence: GB)
  Receive Date: 20110411
  Receipt Date: 20151211
  Transmission Date: 20160305
  Serious: Yes (Death, Other)
  Sender: FDA-Public Use
  Company Number: GB-PFIZER INC-2010102487

PATIENT
  Age: 33 Year
  Sex: Male
  Weight: 100 kg

DRUGS (4)
  1. CHAMPIX [Suspect]
     Active Substance: VARENICLINE TARTRATE
     Indication: SMOKING CESSATION THERAPY
     Dosage: 1 MG, 2X/DAY
     Dates: start: 20100710, end: 201007
  2. CHAMPIX [Suspect]
     Active Substance: VARENICLINE TARTRATE
     Indication: NICOTINE DEPENDENCE
  3. AMOXICILLIN. [Concomitant]
     Active Substance: AMOXICILLIN
  4. NIQUITIN [Concomitant]
     Active Substance: NICOTINE
     Dosage: 2 MG, 12 TIMES DAILY

REACTIONS (4)
  - Aggression [Unknown]
  - Completed suicide [Fatal]
  - Homicide [Unknown]
  - Blood alcohol increased [Unknown]

NARRATIVE: CASE EVENT DATE: 20100725
